FAERS Safety Report 5766978-9 (Version None)
Quarter: 2008Q2

REPORT INFORMATION
  Report Type: 
  Country: None (occurrence: None)
  Receive Date: 20080612
  Receipt Date: 20080609
  Transmission Date: 20081010
  Serious: Yes (Hospitalization)
  Sender: FDA-Public Use
  Company Number: US-ASTRAZENECA-2008UW01891

PATIENT
  Age: 66 Year
  Sex: Female

DRUGS (7)
  1. SEROQUEL [Suspect]
     Dosage: STARTER PACK ( 50, 100, 200, 300) MG
     Route: 048
     Dates: start: 20080118
  2. ATENOLOL [Concomitant]
  3. GLIPIZIDE [Concomitant]
  4. METFORMIN HCL [Concomitant]
  5. SYNTHROID [Concomitant]
  6. ASPIRIN [Concomitant]
  7. TRAMADOL HCL [Concomitant]

REACTIONS (5)
  - CONFUSIONAL STATE [None]
  - DELIRIUM [None]
  - DIZZINESS [None]
  - DRY MOUTH [None]
  - DYSARTHRIA [None]
